FAERS Safety Report 5976223-7 (Version None)
Quarter: 2008Q4

REPORT INFORMATION
  Report Type: 
  Country: None (occurrence: None)
  Receive Date: 20081126
  Receipt Date: 20080610
  Transmission Date: 20090506
  Serious: Yes (Hospitalization)
  Sender: FDA-Public Use
  Company Number: 2008BH006076

PATIENT
  Sex: Male

DRUGS (10)
  1. DIANEAL [Suspect]
     Indication: PERITONEAL DIALYSIS
     Dosage: 9.2 L;EVERY DAY;IP
     Route: 033
  2. FOSRENOL [Concomitant]
  3. LISINOPRIL [Concomitant]
  4. LEXAPRO [Concomitant]
  5. LASIX [Concomitant]
  6. NEURONTIN [Concomitant]
  7. CLONIDINE [Concomitant]
  8. CALCITRIOL [Concomitant]
  9. FLOMAX [Concomitant]
  10. IRON [Concomitant]

REACTIONS (3)
  - CONSTIPATION [None]
  - NAUSEA [None]
  - PERITONITIS BACTERIAL [None]
